FAERS Safety Report 5629493-9 (Version None)
Quarter: 2008Q1

REPORT INFORMATION
  Report Type: 
  Country: None (occurrence: None)
  Receive Date: 20080215
  Receipt Date: 20080215
  Transmission Date: 20080703
  Serious: Yes (Disabling, Other)
  Sender: FDA-Public Use
  Company Number: None

PATIENT
  Sex: Female
  Weight: 67.586 kg

DRUGS (2)
  1. PAXIL [Suspect]
     Indication: DEPRESSION
     Dosage: 40MG 2X DAILY 064 BEFORE 1958 - PRESENT FALL OF 2006
     Dates: start: 19580101
  2. PAXIL [Suspect]
     Indication: DEPRESSION
     Dosage: 40MG 2X DAILY 064 BEFORE 1958 - PRESENT FALL OF 2006
     Dates: start: 20060101

REACTIONS (2)
  - DEPRESSION [None]
  - SUICIDAL IDEATION [None]
